FAERS Safety Report 5808428-X (Version None)
Quarter: 2008Q3

REPORT INFORMATION
  Report Type: 
  Country: None (occurrence: None)
  Receive Date: 20080714
  Receipt Date: 20080707
  Transmission Date: 20090109
  Serious: Yes (Hospitalization, Other)
  Sender: FDA-Public Use
  Company Number: US-JNJFOC-20080407382

PATIENT
  Sex: Female
  Weight: 31.75 kg

DRUGS (1)
  1. CONCERTA [Suspect]
     Indication: ATTENTION DEFICIT/HYPERACTIVITY DISORDER
     Route: 048

REACTIONS (6)
  - ABDOMINAL EXPLORATION [None]
  - ABDOMINAL PAIN [None]
  - APPENDICECTOMY [None]
  - DIARRHOEA [None]
  - INTUSSUSCEPTION [None]
  - MEDICATION RESIDUE [None]
